FAERS Safety Report 6742706-5 (Version None)
Quarter: 2010Q2

REPORT INFORMATION
  Report Type: 
  Country: None (occurrence: None)
  Receive Date: 20100526
  Receipt Date: 20090610
  Transmission Date: 20101027
  Serious: No
  Sender: FDA-Public Use
  Company Number: US-ABBOTT-09P-163-0579468-00

PATIENT
  Age: 67 Year
  Sex: Male

DRUGS (1)
  1. ZEMPLAR [Suspect]
     Indication: HYPERPARATHYROIDISM
     Route: 048
     Dates: start: 20090401, end: 20090401

REACTIONS (5)
  - FLUID RETENTION [None]
  - OEDEMA [None]
  - RENAL IMPAIRMENT [None]
  - SWELLING [None]
  - WEIGHT INCREASED [None]
